FAERS Safety Report 6703005-0 (Version None)
Quarter: 2010Q2

REPORT INFORMATION
  Report Type: 
  Country: None (occurrence: None)
  Receive Date: 20100429
  Receipt Date: 20100429
  Transmission Date: 20101027
  Serious: Yes (Hospitalization)
  Sender: FDA-Public Use
  Company Number: None

PATIENT
  Age: 22 Year
  Sex: Male
  Weight: 43 kg

DRUGS (8)
  1. INFLIXIMAB [Suspect]
     Indication: CHRONIC GRANULOMATOUS DISEASE
     Dosage: 363 MG X  IV INFUSION
     Dates: start: 20090427
  2. INFLIXIMAB [Suspect]
     Indication: COLITIS
     Dosage: 363 MG X  IV INFUSION
     Dates: start: 20090427
  3. POSACONAZOLE [Concomitant]
  4. MESALAMINE [Concomitant]
  5. BACTRIM DS [Concomitant]
  6. CASPOFUNGIN [Concomitant]
  7. METHOTREXATE [Concomitant]
  8. LEUCOVORIN CALCIUM [Concomitant]

REACTIONS (5)
  - BLOOD CULTURE POSITIVE [None]
  - CHILLS [None]
  - DYSPNOEA [None]
  - ENTEROBACTER INFECTION [None]
  - THROAT TIGHTNESS [None]
